FAERS Safety Report 15941473 (Version 4)
Quarter: 2020Q1

REPORT INFORMATION
  Report Type: Spontaneous
  Country: US (occurrence: US)
  Receive Date: 20190208
  Receipt Date: 20200311
  Transmission Date: 20200409
  Serious: Yes (Other)
  Sender: FDA-Public Use
  Company Number: US-ASTRAZENECA-2019SE09600

PATIENT
  Age: 15967 Day
  Sex: Female
  Weight: 106.1 kg

DRUGS (2)
  1. PRILOSEC [Suspect]
     Active Substance: OMEPRAZOLE MAGNESIUM
     Route: 048
  2. PRILOSEC [Suspect]
     Active Substance: OMEPRAZOLE MAGNESIUM
     Route: 048
     Dates: start: 20070101

REACTIONS (6)
  - Acute kidney injury [Unknown]
  - End stage renal disease [Unknown]
  - Renal injury [Unknown]
  - Chronic kidney disease [Unknown]
  - Renal failure [Unknown]
  - Rebound acid hypersecretion [Unknown]

NARRATIVE: CASE EVENT DATE: 20140309
